FAERS Safety Report 23668992 (Version 1)
Quarter: 2024Q1

REPORT INFORMATION
  Report Type: Spontaneous
  Country: JP (occurrence: None)
  Receive Date: 20240325
  Receipt Date: 20240325
  Transmission Date: 20240409
  Serious: Yes (Other)
  Sender: FDA-Public Use
  Company Number: 2024A068607

PATIENT
  Age: 60 Year
  Sex: Female

DRUGS (4)
  1. ONDEXXYA [Suspect]
     Active Substance: ANDEXANET ALFA
     Dosage: DOSE UNKNOWN
     Route: 042
  2. EDOXABAN TOSYLATE [Concomitant]
     Active Substance: EDOXABAN TOSYLATE
     Indication: Atrial fibrillation
     Dosage: DOSE UNKNOWN
     Route: 048
  3. HEPARIN SODIUM [Concomitant]
     Active Substance: HEPARIN SODIUM
     Route: 065
  4. FREEZE-DRIED CONCENTRATED HUMAN ANTITHROMBIN 3 [Concomitant]
     Route: 065

REACTIONS (1)
  - Heparin resistance [Unknown]
